FAERS Safety Report 9301327 (Version 1)
Quarter: 2012Q4

REPORT INFORMATION
  Report Type: Spontaneous
  Country: AU (occurrence: None)
  Receive Date: 20121220
  Receipt Date: 20121220
  Transmission Date: 20130627
  Serious: Yes (Other)
  Sender: FDA-Public Use
  Company Number: 2012-20860

PATIENT
  Age: 41 Year
  Sex: Female

DRUGS (2)
  1. CARBOPLATIN (WATSON LABORATORIES) (CARBOPLATIN) UNK, UNKUNK [Suspect]
     Indication: OVARIAN ADENOCARCINOMA
  2. PACLITAXEL (UNKNOWN) (PACLITAXEL) UNK, UNKUNK [Suspect]
     Indication: OVARIAN ADENOCARCINOMA

REACTIONS (2)
  - Acute myeloid leukaemia [None]
  - Stem cell transplant [None]
